FAERS Safety Report 9033040 (Version 1)
Quarter: 2013Q1

REPORT INFORMATION
  Report Type: Spontaneous
  Country: FR (occurrence: None)
  Receive Date: 20130109
  Receipt Date: 20130109
  Transmission Date: 20140127
  Serious: Yes (Hospitalization)
  Sender: FDA-Public Use
  Company Number: 2012FR0456

PATIENT
  Age: 80 Year
  Sex: Male

DRUGS (3)
  1. KINERET (ANAKINRA), NOT AVAILABLE [Suspect]
     Indication: POLYCHONDRITIS
     Dosage: 4,7619 MG (100 MG, 1 IN 3 WK) SUBCUTANEOUS
     Route: 058
     Dates: end: 20121027
  2. CORTANCYL (PREDNISONE) (TABLETS) [Suspect]
     Dosage: 5 MG (5 MG, 1 IN 1 D)?
     Route: 048
     Dates: end: 20121028
  3. RAMIPRIL (RAMIPRIL) [Concomitant]

REACTIONS (7)
  - Lung disorder [None]
  - Sepsis [None]
  - Tachycardia [None]
  - Livedo reticularis [None]
  - Respiratory alkalosis [None]
  - Hypoxia [None]
  - Renal impairment [None]
